FAERS Safety Report 8936735 (Version 1)
Quarter: 2012Q4

REPORT INFORMATION
  Report Type: 
  Country: US (occurrence: US)
  Receive Date: 20121130
  Receipt Date: 20121130
  Transmission Date: 20130627
  Serious: Yes (Hospitalization, Congenital Anomaly, Other)
  Sender: FDA-Public Use
  Company Number: US-PFIZER INC-2012296329

PATIENT
  Sex: Female
  Weight: 1.21 kg

DRUGS (18)
  1. ZOLOFT [Suspect]
     Indication: DEPRESSION
     Dosage: UNK
     Route: 064
  2. ZOLOFT [Suspect]
     Indication: MOOD DISORDER NOS
     Dosage: 12.5 mg, daily
     Route: 064
     Dates: start: 20090102
  3. ZOLOFT [Suspect]
     Dosage: 50 mg, daily
     Route: 064
     Dates: start: 20090103
  4. ZOLOFT [Suspect]
     Dosage: 100 mg, daily
     Route: 064
     Dates: start: 20100126, end: 20100127
  5. ZOLOFT [Suspect]
     Dosage: 150 mg, daily
     Route: 064
     Dates: start: 20100128
  6. SERTRALINE [Concomitant]
     Dosage: 100 mg, UNK
     Route: 064
     Dates: start: 20090202
  7. SERTRALINE [Concomitant]
     Dosage: 100 mg, UNK
     Route: 064
     Dates: start: 20090419
  8. SERTRALINE [Concomitant]
     Dosage: 100 mg, UNK
     Route: 064
     Dates: start: 20091029
  9. PRENATAL VITAMINS [Concomitant]
     Dosage: UNK, daily
     Route: 064
  10. FERROUS SULFATE [Concomitant]
     Dosage: UNK, daily
     Route: 064
  11. ZITHROMAX [Concomitant]
     Dosage: UNK
     Route: 064
     Dates: start: 20100125
  12. AMPICILLIN [Concomitant]
     Dosage: 2 g, every 6 hours
     Route: 064
     Dates: start: 20100125, end: 20100129
  13. CELESTONE [Concomitant]
     Dosage: 12 mg, UNK
     Route: 048
     Dates: start: 20100125
  14. TYLENOL [Concomitant]
     Indication: PAIN
     Dosage: 975 mg, 3x/day
     Route: 064
     Dates: start: 20100125
  15. ZOFRAN [Concomitant]
     Indication: NAUSEA
     Dosage: 4 mg, 3x/day
     Route: 064
     Dates: start: 20100125
  16. ZOFRAN [Concomitant]
     Indication: VOMITING
  17. AMBIEN [Concomitant]
     Indication: SLEEP DISORDER
     Dosage: 10 mg, UNK
     Route: 064
     Dates: start: 20100126
  18. DIPHENHYDRAMINE [Concomitant]
     Indication: ITCHING
     Dosage: 25 mg, 4x/day
     Route: 064

REACTIONS (14)
  - Maternal exposure timing unspecified [Unknown]
  - Atrial septal defect [Unknown]
  - Haemoglobinopathy [Recovered/Resolved]
  - Congenital anaemia [Unknown]
  - Retinopathy congenital [Unknown]
  - Congenital tricuspid valve incompetence [Unknown]
  - Pulmonary valve incompetence [Unknown]
  - Pulmonary artery stenosis congenital [Unknown]
  - Infantile apnoeic attack [Unknown]
  - Neonatal respiratory distress syndrome [Recovered/Resolved]
  - Sepsis neonatal [Recovered/Resolved]
  - Hyperbilirubinaemia neonatal [Recovered/Resolved]
  - Premature baby [Unknown]
  - Low birth weight baby [Unknown]
